FAERS Safety Report 4549746-5 (Version None)
Quarter: 2004Q4

REPORT INFORMATION
  Report Type: 
  Country: None (occurrence: None)
  Receive Date: 20041227
  Receipt Date: 20040913
  Transmission Date: 20050328
  Serious: No
  Sender: FDA-Public Use
  Company Number: 04P-163-0273133-00

PATIENT
  Age: 61 Year
  Sex: Female
  Weight: 75.2971 kg

DRUGS (6)
  1. HUMIRA [Suspect]
     Indication: RHEUMATOID ARTHRITIS
     Dosage: 40 MG, SUBCUTANEOUS
     Route: 058
     Dates: start: 20040601, end: 20040801
  2. METHOTREXATE [Concomitant]
  3. HYDROCHLOROTHIAZIDE [Concomitant]
  4. PREDNISONE [Concomitant]
  5. SERETIDE MITE [Concomitant]
  6. LORATADINE [Concomitant]

REACTIONS (1)
  - DRUG INEFFECTIVE [None]
